FAERS Safety Report 21542421 (Version 1)
Quarter: 2022Q4

REPORT INFORMATION
  Report Type: Report from Study
  Country: ES (occurrence: ES)
  Receive Date: 20221102
  Receipt Date: 20221102
  Transmission Date: 20230113
  Serious: Yes (Hospitalization)
  Sender: FDA-Public Use
  Company Number: ES-GSK-ES2022148257

PATIENT

DRUGS (2)
  1. BELANTAMAB MAFODOTIN [Suspect]
     Active Substance: BELANTAMAB MAFODOTIN
     Indication: Plasma cell myeloma refractory
     Dosage: 2.50 MG/KG, CYC (INFUSED OVER 30 - 60 MINUTES)
     Route: 042
     Dates: start: 20220215, end: 20220607
  2. BELANTAMAB MAFODOTIN [Suspect]
     Active Substance: BELANTAMAB MAFODOTIN
     Dosage: 147.25 MG, CYC (INFUSED OVER 30 - 60 MINUTES)
     Route: 042
     Dates: start: 20220920, end: 20220920

REACTIONS (1)
  - Epistaxis [Recovered/Resolved]

NARRATIVE: CASE EVENT DATE: 20221003
